FAERS Safety Report 21997212 (Version 1)
Quarter: 2023Q1

REPORT INFORMATION
  Report Type: Spontaneous
  Country: IT (occurrence: IT)
  Receive Date: 20230216
  Receipt Date: 20230216
  Transmission Date: 20230418
  Serious: Yes (Other)
  Sender: FDA-Public Use
  Company Number: None

PATIENT
  Age: 57 Year
  Sex: Male

DRUGS (1)
  1. PHENYLEPHRINE HYDROCHLORIDE [Suspect]
     Active Substance: PHENYLEPHRINE HYDROCHLORIDE
     Indication: Mydriasis
     Dosage: DOSAGE: 1 UNIT OF MEASURE: DOSING UNIT FREQUENCY OF ADMINISTRATION: TOTAL
     Route: 047
     Dates: start: 20220707, end: 20220707

REACTIONS (4)
  - Punctate keratitis [Recovering/Resolving]
  - Drug hypersensitivity [Recovering/Resolving]
  - Conjunctival hyperaemia [Recovering/Resolving]
  - Eyelid oedema [Recovering/Resolving]

NARRATIVE: CASE EVENT DATE: 20220708
